FAERS Safety Report 24321173 (Version 1)
Quarter: 2024Q3

REPORT INFORMATION
  Report Type: Spontaneous
  Country: US (occurrence: US)
  Receive Date: 20240916
  Receipt Date: 20240916
  Transmission Date: 20241016
  Serious: Yes (Other)
  Sender: AMGEN
  Company Number: US-AMGEN-USASP2024181230

PATIENT

DRUGS (1)
  1. DICLOFENAC SODIUM [Suspect]
     Active Substance: DICLOFENAC\DICLOFENAC SODIUM
     Indication: Prophylaxis
     Dosage: 100 MILLIGRAM,(2 X 50 MG SUPPOSITORIES)
     Route: 054

REACTIONS (2)
  - Pancreatitis relapsing [Unknown]
  - Off label use [Unknown]
